FAERS Safety Report 10572792 (Version 7)
Quarter: 2022Q2

REPORT INFORMATION
  Report Type: Report from Study
  Country: US (occurrence: None)
  Receive Date: 20141110
  Receipt Date: 20220512
  Transmission Date: 20220721
  Serious: Yes (Hospitalization, Other)
  Sender: FDA-Public Use
  Company Number: US-ROCHE-1445715

PATIENT
  Age: 53 Year
  Sex: Male
  Weight: 89.2 kg

DRUGS (2)
  1. BEVACIZUMAB [Suspect]
     Active Substance: BEVACIZUMAB
     Indication: Malignant melanoma
     Dosage: ON DAY 1 OF CYCLES 1-4 AND DAY 1 OF EACH CYCLE BEGINNING ON CYCLE 5.  MOST RECENT DOSE RECEIVED ON:
     Route: 042
     Dates: start: 20140416, end: 20141001
  2. IPILIMUMAB [Suspect]
     Active Substance: IPILIMUMAB
     Indication: Malignant melanoma
     Dosage: ON DAY 1 OF CYCLES 1-4 AND ON DAY 1 OF EVERY FOURTH CYCLE BEGINNING ON CYCLE 8. MOST RECENT DOSE REC
     Route: 042
     Dates: start: 20140416, end: 20141001

REACTIONS (9)
  - Hyponatraemia [Unknown]
  - Endocrine disorder [Recovered/Resolved]
  - Hypophysitis [Recovered/Resolved with Sequelae]
  - Adrenal insufficiency [Recovered/Resolved with Sequelae]
  - Hypothyroidism [Unknown]
  - Lipase increased [Unknown]
  - Obesity [Unknown]
  - Headache [Unknown]
  - Adrenal insufficiency [Unknown]

NARRATIVE: CASE EVENT DATE: 20140709
